FAERS Safety Report 5273237-X (Version None)
Quarter: 2007Q1

REPORT INFORMATION
  Report Type: 
  Country: None (occurrence: None)
  Receive Date: 20070319
  Receipt Date: 20070307
  Transmission Date: 20070707
  Serious: Yes (Other)
  Sender: FDA-Public Use
  Company Number: 34944

PATIENT
  Age: 45 Year
  Sex: Male
  Weight: 79 kg

DRUGS (4)
  1. DICYCLOMINE HCL [Suspect]
     Indication: ABDOMINAL PAIN
     Dosage: 10MG/IV PUSH
     Route: 042
     Dates: start: 20070307
  2. DICYCLOMINE HCL [Suspect]
     Indication: COLITIS
     Dosage: 10MG/IV PUSH
     Route: 042
     Dates: start: 20070307
  3. ORAL METRINIDAZOLE [Concomitant]
  4. ORAL VANCOMYCIN [Concomitant]

REACTIONS (2)
  - DRUG PRESCRIBING ERROR [None]
  - MEDICATION ERROR [None]
